FAERS Safety Report 7475003-3 (Version None)
Quarter: 2011Q2

REPORT INFORMATION
  Report Type: 
  Country: None (occurrence: None)
  Receive Date: 20110512
  Receipt Date: 20110506
  Transmission Date: 20111010
  Serious: Yes (Death, Other)
  Sender: FDA-Public Use
  Company Number: US-TEVA-280623USA

PATIENT
  Sex: Female

DRUGS (1)
  1. CLARAVIS [Suspect]
     Dosage: 60 MILLIGRAM; 40MG IN THE MORNING, 20MG IN THE AFTERNOON
     Dates: end: 20110101

REACTIONS (1)
  - COMPLETED SUICIDE [None]
